FAERS Safety Report 16782479 (Version 47)
Quarter: 2024Q3

REPORT INFORMATION
  Report Type: Other
  Country: DE (occurrence: DE)
  Receive Date: 20190906
  Receipt Date: 20240919
  Transmission Date: 20241016
  Serious: Yes (Other)
  Sender: ASCEND
  Company Number: DE-ASCEND THERAPEUTICS US, LLC-2074123

PATIENT
  Age: 41 Year
  Sex: Female
  Weight: 40 kg

DRUGS (27)
  1. ESTROGEL [Suspect]
     Active Substance: ESTRADIOL
     Indication: Osteoporosis
     Dates: end: 20190812
  2. ESTRADIOL [Suspect]
     Active Substance: ESTRADIOL
     Dates: end: 20190812
  3. OCREVUS [Suspect]
     Active Substance: OCRELIZUMAB
  4. CORTISONE [Suspect]
     Active Substance: CORTISONE
  5. CORTISONE [Suspect]
     Active Substance: CORTISONE
     Dates: start: 20220404
  6. OCREVUS [Suspect]
     Active Substance: OCRELIZUMAB
     Dates: start: 20200706
  7. TOLTERODINE(TOLTERODINE) [Concomitant]
  8. OCREVUS [Suspect]
     Active Substance: OCRELIZUMAB
     Dates: start: 20210927
  9. OCREVUS [Suspect]
     Active Substance: OCRELIZUMAB
     Dates: start: 20210318
  10. COMIRNATY (TOZINAMERAN) [Suspect]
     Active Substance: TOZINAMERAN
     Dates: start: 20210805
  11. COMIRNATY (TOZINAMERAN) [Suspect]
     Active Substance: TOZINAMERAN
     Dates: start: 20210708
  12. OCREVUS [Suspect]
     Active Substance: OCRELIZUMAB
     Dates: start: 20210313
  13. OCREVUS [Suspect]
     Active Substance: OCRELIZUMAB
     Dates: start: 20200706
  14. OCRELIZUMAB [Suspect]
     Active Substance: OCRELIZUMAB
     Dates: start: 20200106
  15. ESTRADIOL [Suspect]
     Active Substance: ESTRADIOL
  16. PROGESTERONE [Suspect]
     Active Substance: PROGESTERONE
  17. Fluvoxamine?Drug use for unknown indication [Concomitant]
  18. Calcium ?Drug use for unknown indication?Chewable tablets together wit [Concomitant]
  19. Folinic Acid (Folinic Acid?Drug use for unknown indication [Concomitant]
  20. Ferrum (Ferrous Gluconate) ?Drug use for unknown indication [Concomitant]
  21. OCRELIZUMAB [Suspect]
     Active Substance: OCRELIZUMAB
     Dates: start: 20190701
  22. PROGESTERONE [Suspect]
     Active Substance: PROGESTERONE
     Dates: start: 20190812
  23. PROGESTERONE [Suspect]
     Active Substance: PROGESTERONE
  24. PROGESTERONE [Suspect]
     Active Substance: PROGESTERONE
  25. ESTRADIOL [Suspect]
     Active Substance: ESTRADIOL
  26. ESTRADIOL [Suspect]
     Active Substance: ESTRADIOL
  27. ESTRADIOL [Suspect]
     Active Substance: ESTRADIOL

REACTIONS (90)
  - Salivary hypersecretion [Recovered/Resolved]
  - Sensory disturbance [Recovered/Resolved]
  - Dizziness [Recovered/Resolved]
  - Nasopharyngitis [Recovered/Resolved]
  - Influenza like illness [Recovered/Resolved]
  - B-lymphocyte count decreased [Not Recovered/Not Resolved]
  - Pain in extremity [Recovered/Resolved]
  - Throat irritation [Recovered/Resolved]
  - Hypoaesthesia [Not Recovered/Not Resolved]
  - Feeling drunk [Recovered/Resolved]
  - Fine motor skill dysfunction [Recovering/Resolving]
  - Hot flush [Unknown]
  - COVID-19 [Recovered/Resolved]
  - Tooth loss [Recovered/Resolved]
  - Weight decreased [Recovering/Resolving]
  - Aggression [Not Recovered/Not Resolved]
  - Oropharyngeal pain [Not Recovered/Not Resolved]
  - Insomnia [Recovered/Resolved]
  - Tendon pain [Recovered/Resolved]
  - Chills [Recovered/Resolved]
  - Pyrexia [Recovered/Resolved]
  - Weight increased [Recovered/Resolved]
  - Suicidal ideation [Recovered/Resolved]
  - Off label use [Unknown]
  - B-lymphocyte count increased [Not Recovered/Not Resolved]
  - Mood swings [Recovered/Resolved]
  - Influenza [Recovered/Resolved]
  - Abdominal pain upper [Recovered/Resolved]
  - Hypoaesthesia [Recovered/Resolved]
  - Toothache [Recovered/Resolved]
  - Pain in extremity [Recovered/Resolved]
  - Fatigue [Not Recovered/Not Resolved]
  - Bacterial vulvovaginitis [Not Recovered/Not Resolved]
  - Pruritus [Not Recovered/Not Resolved]
  - Drug ineffective [Unknown]
  - Device failure [Unknown]
  - Pain in jaw [Not Recovered/Not Resolved]
  - Dental prosthesis placement [Unknown]
  - B-lymphocyte count increased [Recovered/Resolved]
  - Headache [Recovered/Resolved]
  - Depression [Not Recovered/Not Resolved]
  - Anger [Not Recovered/Not Resolved]
  - Intentional self-injury [Not Recovered/Not Resolved]
  - Depression [Recovered/Resolved]
  - Depression [Not Recovered/Not Resolved]
  - Oedema [Unknown]
  - Limb discomfort [Recovered/Resolved]
  - Arthralgia [Not Recovered/Not Resolved]
  - Pain in extremity [Recovered/Resolved]
  - Arthralgia [Not Recovered/Not Resolved]
  - Constipation [Recovered/Resolved]
  - Headache [Recovered/Resolved]
  - Oedema [Unknown]
  - Back pain [Recovered/Resolved]
  - Psoriasis [Recovered/Resolved]
  - Oropharyngeal pain [Recovered/Resolved]
  - Mucosal dryness [Not Recovered/Not Resolved]
  - Gait disturbance [Not Recovered/Not Resolved]
  - Musculoskeletal stiffness [Recovered/Resolved]
  - Urinary incontinence [Not Recovered/Not Resolved]
  - Nail bed inflammation [Not Recovered/Not Resolved]
  - Insomnia [Recovered/Resolved]
  - Vision blurred [Recovered/Resolved]
  - Visual field defect [Recovered/Resolved]
  - Visual field defect [Recovered/Resolved]
  - Fluid retention [Not Recovered/Not Resolved]
  - Limb discomfort [Not Recovered/Not Resolved]
  - Weight decreased [Not Recovered/Not Resolved]
  - Circulatory collapse [Recovered/Resolved]
  - Food poisoning [Recovered/Resolved]
  - Visual impairment [Recovered/Resolved]
  - Migraine [Recovered/Resolved]
  - Fatigue [Not Recovered/Not Resolved]
  - Fatigue [Not Recovered/Not Resolved]
  - Skin burning sensation [Recovered/Resolved]
  - Depression [Not Recovered/Not Resolved]
  - Coordination abnormal [Not Recovered/Not Resolved]
  - Coordination abnormal [Not Recovered/Not Resolved]
  - Nerve compression [Not Recovered/Not Resolved]
  - Anxiety [Unknown]
  - Panic attack [Not Recovered/Not Resolved]
  - Paraesthesia [Unknown]
  - Muscular weakness [Not Recovered/Not Resolved]
  - Chest pain [Not Recovered/Not Resolved]
  - Nasopharyngitis [Recovered/Resolved]
  - Cardiovascular insufficiency [Unknown]
  - Throat irritation [Recovered/Resolved]
  - Arthralgia [Not Recovered/Not Resolved]
  - White blood cell count decreased [Recovered/Resolved]
  - Blood pressure decreased [Recovered/Resolved]

NARRATIVE: CASE EVENT DATE: 20190701
